FAERS Safety Report 25209673 (Version 1)
Quarter: 2025Q2

REPORT INFORMATION
  Report Type: Spontaneous
  Country: US (occurrence: US)
  Receive Date: 20250417
  Receipt Date: 20250417
  Transmission Date: 20250717
  Serious: No
  Sender: GILEAD
  Company Number: US-GILEAD-2025-0710621

PATIENT
  Age: 66 Year
  Sex: Female
  Weight: 57.1 kg

DRUGS (26)
  1. LETAIRIS [Suspect]
     Active Substance: AMBRISENTAN
     Indication: Pulmonary arterial hypertension
     Route: 065
  2. ORENITRAM [Suspect]
     Active Substance: TREPROSTINIL
     Indication: Pulmonary arterial hypertension
     Route: 048
     Dates: start: 20190403
  3. ORENITRAM [Suspect]
     Active Substance: TREPROSTINIL
     Dosage: 2 MG, TID
     Route: 048
  4. PEPCID [Concomitant]
     Active Substance: FAMOTIDINE
  5. IMODIUM MULTI-SYMPTOM RELIEF [Concomitant]
     Active Substance: DIMETHICONE\LOPERAMIDE HYDROCHLORIDE
  6. TYLENOL [Concomitant]
     Active Substance: ACETAMINOPHEN
  7. FOLIC ACID [Concomitant]
     Active Substance: FOLIC ACID
  8. DULCOLAX (BISACODYL) [Concomitant]
     Active Substance: BISACODYL
  9. XARELTO [Concomitant]
     Active Substance: RIVAROXABAN
  10. LYRICA [Concomitant]
     Active Substance: PREGABALIN
  11. SYNTHROID [Concomitant]
     Active Substance: LEVOTHYROXINE SODIUM
  12. LASIX [Concomitant]
     Active Substance: FUROSEMIDE
  13. ZOFRAN [Concomitant]
     Active Substance: ONDANSETRON HYDROCHLORIDE
  14. DULOXETINE HYDROCHLORIDE [Concomitant]
     Active Substance: DULOXETINE HYDROCHLORIDE
  15. TRAMADOL HCL [Concomitant]
     Active Substance: TRAMADOL HYDROCHLORIDE
  16. FERROUS GLUCONATE [Concomitant]
     Active Substance: FERROUS GLUCONATE
  17. OXYGEN [Concomitant]
     Active Substance: OXYGEN
  18. LIDOCAINE [Concomitant]
     Active Substance: LIDOCAINE
  19. COLCHICINE [Concomitant]
     Active Substance: COLCHICINE
  20. VITAMIN B12 [Concomitant]
     Active Substance: CYANOCOBALAMIN
  21. MUPIROCIN [Concomitant]
     Active Substance: MUPIROCIN
  22. ACETAMINOPHEN\HYDROCODONE [Concomitant]
     Active Substance: ACETAMINOPHEN\HYDROCODONE
  23. GABAPENTIN [Concomitant]
     Active Substance: GABAPENTIN
  24. MAGNESIUM [Concomitant]
     Active Substance: MAGNESIUM
  25. ACETAMINOPHEN AND CODEINE [Concomitant]
     Active Substance: ACETAMINOPHEN\CODEINE PHOSPHATE
  26. WELLBUTRIN SR [Concomitant]
     Active Substance: BUPROPION HYDROCHLORIDE

REACTIONS (2)
  - Malaise [Unknown]
  - Product dose omission in error [Unknown]
